FAERS Safety Report 14367322 (Version 1)
Quarter: 2018Q1

REPORT INFORMATION
  Report Type: Spontaneous
  Country: US (occurrence: US)
  Receive Date: 20180108
  Receipt Date: 20180108
  Transmission Date: 20180509
  Serious: Yes (Hospitalization)
  Sender: FDA-Public Use
  Company Number: None

PATIENT
  Age: 70 Year
  Sex: Male

DRUGS (2)
  1. WARFARIN [Suspect]
     Active Substance: WARFARIN
     Indication: STENT PLACEMENT
     Route: 048
     Dates: start: 20160317, end: 20171202
  2. WARFARIN [Suspect]
     Active Substance: WARFARIN
     Indication: ATRIAL FIBRILLATION
     Route: 048
     Dates: start: 20160317, end: 20171202

REACTIONS (4)
  - Anaemia [None]
  - Chest pain [None]
  - Diarrhoea [None]
  - Gastric haemorrhage [None]

NARRATIVE: CASE EVENT DATE: 20171202
